FAERS Safety Report 16791624 (Version 2)
Quarter: 2020Q4

REPORT INFORMATION
  Report Type: Report from Study
  Country: US (occurrence: US)
  Receive Date: 20190910
  Receipt Date: 20201014
  Transmission Date: 20210113
  Serious: Yes (Hospitalization)
  Sender: FDA-Public Use
  Company Number: US-PFIZER INC-2019385487

PATIENT
  Age: 38 Year
  Sex: Male
  Weight: 103.6 kg

DRUGS (4)
  1. GLASDEGIB [Suspect]
     Active Substance: GLASDEGIB
     Indication: ACUTE MYELOID LEUKAEMIA
     Dosage: ONCE DAILY CONTINUOUS
     Route: 048
     Dates: start: 20190709
  2. CYTARABINE. [Suspect]
     Active Substance: CYTARABINE
     Indication: ACUTE MYELOID LEUKAEMIA
     Dosage: CYTARABINE (INDUCTION) 235 MG, DAILY BY CONTINUOUS INFUSION
     Route: 041
     Dates: start: 20190709, end: 20190715
  3. CYTARABINE. [Suspect]
     Active Substance: CYTARABINE
     Indication: ACUTE MYELOID LEUKAEMIA
     Dosage: CYTARABINE (CONSOLIDATION) 6990 MG, CYCLIC 1 CONSOLIDATION
     Route: 042
     Dates: start: 20190819, end: 20190824
  4. DAUNORUBICIN [Suspect]
     Active Substance: DAUNORUBICIN
     Indication: ACUTE MYELOID LEUKAEMIA
     Dosage: 141 MG, DAILY BY CONTINUOUS INFUSION
     Route: 041
     Dates: start: 20190709, end: 20190711

REACTIONS (1)
  - Febrile neutropenia [Recovered/Resolved with Sequelae]

NARRATIVE: CASE EVENT DATE: 20190903
